FAERS Safety Report 15396164 (Version 1)
Quarter: 2018Q3

REPORT INFORMATION
  Report Type: Spontaneous
  Country: US (occurrence: US)
  Receive Date: 20180912
  Receipt Date: 20180912
  Transmission Date: 20181010
  Serious: No
  Sender: FDA-Public Use
  Company Number: None

PATIENT
  Age: 52 Year
  Sex: Female
  Weight: 66.6 kg

DRUGS (1)
  1. ORGANIC WHOLE HUSK PSYLLIUM [Suspect]
     Active Substance: PSYLLIUM HUSK
     Indication: GASTROINTESTINAL DISORDER
     Route: 048
     Dates: start: 20180809, end: 20180908

REACTIONS (4)
  - Diarrhoea [None]
  - Product quality issue [None]
  - Malaise [None]
  - Product odour abnormal [None]

NARRATIVE: CASE EVENT DATE: 20180901
